FAERS Safety Report 7425059-9 (Version None)
Quarter: 2011Q2

REPORT INFORMATION
  Report Type: 
  Country: None (occurrence: None)
  Receive Date: 20110420
  Receipt Date: 20110411
  Transmission Date: 20111010
  Serious: Yes (Hospitalization)
  Sender: FDA-Public Use
  Company Number: US-BIOGENIDEC-2010BI008918

PATIENT
  Age: 38 Year
  Sex: Female

DRUGS (3)
  1. RESERPINE [Concomitant]
     Indication: HYPOTENSION
  2. TYSABRI [Suspect]
     Route: 042
     Dates: start: 20100401
  3. TYSABRI [Suspect]
     Indication: MULTIPLE SCLEROSIS
     Route: 042
     Dates: start: 20100127

REACTIONS (9)
  - DYSPNOEA [None]
  - CONTUSION [None]
  - CARDIAC ARREST [None]
  - OPTIC NEURITIS [None]
  - ELECTROENCEPHALOGRAM ABNORMAL [None]
  - RASH VESICULAR [None]
  - HYPOTENSION [None]
  - MULTIPLE SCLEROSIS RELAPSE [None]
  - HYPOTHYROIDISM [None]
